FAERS Safety Report 4308767-8 (Version None)
Quarter: 2004Q1

REPORT INFORMATION
  Report Type: 
  Country: None (occurrence: None)
  Receive Date: 20040301
  Receipt Date: 20040301
  Transmission Date: 20041129
  Serious: No
  Sender: FDA-Public Use
  Company Number: None

PATIENT
  Age: 59 Year
  Sex: Female

DRUGS (8)
  1. ALBUTEROL [Suspect]
     Indication: BRONCHOSPASM
     Dosage: 2.5 MG INHAL Q 4 H PRN
     Route: 055
     Dates: start: 20030512, end: 20030514
  2. IPRATROPIUM BROMIDE [Suspect]
     Dosage: 0.5 G INH Q 4 H PRN
     Route: 055
     Dates: start: 20030512, end: 20030514
  3. LIPITOR [Concomitant]
  4. VIOXX [Concomitant]
  5. PRINIVIL [Concomitant]
  6. ARIMIDEX [Concomitant]
  7. FLONASE [Concomitant]
  8. ROBITUSSIN [Concomitant]

REACTIONS (7)
  - ACCIDENTAL EXPOSURE [None]
  - ANGLE CLOSURE GLAUCOMA [None]
  - CHEMICAL EYE INJURY [None]
  - CORNEAL OEDEMA [None]
  - INTRAOCULAR PRESSURE INCREASED [None]
  - MEDICATION ERROR [None]
  - VISUAL ACUITY REDUCED [None]
